FAERS Safety Report 11559286 (Version 1)
Quarter: 2015Q3

REPORT INFORMATION
  Report Type: Report from Study
  Country: IL (occurrence: IL)
  Receive Date: 20150928
  Receipt Date: 20150928
  Transmission Date: 20151125
  Serious: Yes (Other)
  Sender: FDA-Public Use
  Company Number: PHHY2014IL096075

PATIENT
  Sex: Female

DRUGS (1)
  1. GILENYA [Suspect]
     Active Substance: FINGOLIMOD HYDROCHLORIDE
     Indication: MULTIPLE SCLEROSIS
     Dosage: 0.5 MG, QD
     Route: 048
     Dates: start: 20120305

REACTIONS (5)
  - Paraesthesia [Not Recovered/Not Resolved]
  - Multiple sclerosis relapse [Unknown]
  - Tremor [Recovered/Resolved]
  - Central nervous system lesion [Unknown]
  - Hypoaesthesia [Recovering/Resolving]
